FAERS Safety Report 9780248 (Version 2)
Quarter: 2014Q1

REPORT INFORMATION
  Report Type: Spontaneous
  Country: DE (occurrence: DE)
  Receive Date: 20131223
  Receipt Date: 20140116
  Transmission Date: 20141002
  Serious: Yes (Death, Other)
  Sender: FDA-Public Use
  Company Number: DE-BRISTOL-MYERS SQUIBB COMPANY-19908417

PATIENT
  Age: 87 Year
  Sex: Female

DRUGS (1)
  1. VEPESID-K CAPS 100 MG [Suspect]
     Indication: LYMPHOMA
     Route: 048

REACTIONS (5)
  - Malignant neoplasm progression [Fatal]
  - Sepsis [Fatal]
  - Dysphagia [Unknown]
  - Choking [Unknown]
  - Medication error [Unknown]
